FAERS Safety Report 20359067 (Version 3)
Quarter: 2022Q4

REPORT INFORMATION
  Report Type: Spontaneous
  Country: AU (occurrence: AU)
  Receive Date: 20220120
  Receipt Date: 20221227
  Transmission Date: 20230112
  Serious: Yes (Hospitalization)
  Sender: FDA-Public Use
  Company Number: AU-009507513-2201AUS004134

PATIENT
  Age: 62 Year
  Sex: Male

DRUGS (14)
  1. AZACITIDINE [Suspect]
     Active Substance: AZACITIDINE
     Indication: Myelodysplastic syndrome
     Dosage: 75 MILLIGRAM/SQ. METER
     Route: 058
     Dates: start: 20190902
  2. ESOMEPRAZOLE [Concomitant]
     Active Substance: ESOMEPRAZOLE
     Indication: Gastrooesophageal reflux disease
     Dosage: 20 MILLIGRAM, 1 DAY
     Route: 048
     Dates: start: 20191108
  3. FENTANYL [Concomitant]
     Active Substance: FENTANYL
     Indication: Biopsy bone marrow
     Dosage: 100 MICROGRAM, 1/DAY
     Route: 042
     Dates: start: 20190925, end: 20190925
  4. FENTANYL [Concomitant]
     Active Substance: FENTANYL
     Dosage: 100 MILLIGRAM, 1 DAY
     Route: 042
     Dates: start: 20191023, end: 20191023
  5. FILGRASTIM [Concomitant]
     Active Substance: FILGRASTIM
     Indication: Neutropenia
     Dosage: 300 MICROGRAM
     Route: 058
     Dates: start: 20191028
  6. JANUMET [Concomitant]
     Active Substance: METFORMIN HYDROCHLORIDE\SITAGLIPTIN PHOSPHATE
     Indication: Diabetes mellitus
     Dosage: 1000 MILLIGRAM, 1 DAY
     Route: 048
  7. MIDAZOLAM [Concomitant]
     Active Substance: MIDAZOLAM
     Indication: Biopsy bone marrow
     Dosage: 2 MILLIGRAM, 1/DAY
     Route: 042
     Dates: start: 20190925, end: 20190925
  8. MIDAZOLAM [Concomitant]
     Active Substance: MIDAZOLAM
     Dosage: 2 MILLIGRAM, 1/DAY
     Route: 042
     Dates: start: 20191023, end: 20191023
  9. ONDANSETRON [Concomitant]
     Active Substance: ONDANSETRON
     Indication: Prophylaxis of nausea and vomiting
     Dosage: 8 MILLIGRAM
     Route: 048
     Dates: start: 20190902
  10. OXYCODONE [Concomitant]
     Active Substance: OXYCODONE
     Indication: Pain
     Dosage: 5 MILLIGRAM, 1DAY
     Route: 048
     Dates: start: 20191023, end: 20191023
  11. ACETAMINOPHEN [Concomitant]
     Active Substance: ACETAMINOPHEN
     Indication: Pain
     Dosage: 1000 MILLIGRAM, QD
     Route: 048
     Dates: start: 20191023, end: 20191023
  12. POSACONAZOLE [Concomitant]
     Active Substance: POSACONAZOLE
     Indication: Antifungal prophylaxis
     Dosage: 300 MILLIGRAM, 1 DAY
     Route: 048
     Dates: start: 20191017
  13. VALACYCLOVIR HYDROCHLORIDE [Concomitant]
     Active Substance: VALACYCLOVIR HYDROCHLORIDE
     Indication: Antiviral prophylaxis
     Dosage: 1000 MILLIGRAM, 1 DAY
     Route: 048
     Dates: start: 20190830
  14. VENETOCLAX [Concomitant]
     Active Substance: VENETOCLAX
     Indication: Myelodysplastic syndrome
     Dosage: 400 MILLIGRAM
     Route: 048
     Dates: start: 20190902

REACTIONS (1)
  - Febrile neutropenia [Recovered/Resolved]

NARRATIVE: CASE EVENT DATE: 20191108
